FAERS Safety Report 7235024-2 (Version None)
Quarter: 2011Q1

REPORT INFORMATION
  Report Type: 
  Country: None (occurrence: None)
  Receive Date: 20110120
  Receipt Date: 20110113
  Transmission Date: 20110831
  Serious: Yes (Hospitalization, Other)
  Sender: FDA-Public Use
  Company Number: US-ASTRAZENECA-2007UW20781

PATIENT
  Age: 16017 Day
  Sex: Female
  Weight: 116.1 kg

DRUGS (30)
  1. LISINOPRIL [Concomitant]
     Route: 065
  2. LEXAPRO [Concomitant]
     Route: 048
  3. PROMETHAZINE [Concomitant]
     Route: 054
  4. PROMETHAZINE [Concomitant]
     Route: 048
  5. ALBUTEROL [Concomitant]
     Route: 065
  6. IBUPROFEN [Concomitant]
     Route: 048
     Dates: start: 20061120
  7. SEROQUEL [Suspect]
     Dosage: 1300 MG TO 1400 MG DAILY
     Route: 048
     Dates: start: 20040201
  8. RISPERDAL [Concomitant]
     Indication: FLASHBACK
     Route: 065
     Dates: start: 20031001, end: 20040201
  9. DEXATRIM [Concomitant]
     Route: 065
     Dates: start: 20050101, end: 20050101
  10. LISINOPRIL [Concomitant]
     Dates: start: 20070201
  11. NOSTRIL [Concomitant]
     Dosage: 29 MCG TWO SPRAYS TWICE A DAY
     Route: 045
  12. TRAZODONE [Concomitant]
     Route: 065
  13. METFORMIN [Concomitant]
     Route: 048
     Dates: start: 20070222, end: 20090221
  14. THIAMINE HCL [Concomitant]
     Dosage: 1000 MG/ML
     Route: 065
     Dates: start: 20070510
  15. ACETAMINOPHEN [Concomitant]
     Route: 065
     Dates: start: 20061120, end: 20061125
  16. SEREVENT [Concomitant]
     Dosage: 50 MCG DISKUS 2 PUFFS
     Route: 065
  17. ATENOLOL [Concomitant]
     Dosage: 50 MG TO 100 MG
     Route: 048
  18. FERROUS SULFATE TAB [Concomitant]
     Route: 048
     Dates: start: 20070720
  19. WELLBUTRIN [Concomitant]
     Dosage: 100 MG TO 150 MG
     Route: 048
  20. BENADRYL [Concomitant]
     Route: 065
  21. SEROQUEL [Suspect]
     Indication: SLEEP TERROR
     Dosage: 50 MG TO 1400 MG PER DAY
     Route: 048
     Dates: start: 20030203
  22. POTASSIUM CHLORIDE [Concomitant]
     Dosage: 10% LIQUID
     Route: 048
     Dates: start: 20070510
  23. ERGOCALCIFEROL [Concomitant]
     Dates: start: 20070201
  24. HALOPERIDOL [Concomitant]
     Dosage: 0.25 MG TO 0.5 MG PER DAY
     Route: 048
  25. AUGMENTIN '125' [Concomitant]
     Route: 065
  26. HALDOL [Concomitant]
     Route: 065
  27. LORAZEPAM [Concomitant]
     Route: 048
  28. TOPAMAX [Concomitant]
     Route: 048
  29. CLONIDINE [Concomitant]
     Route: 048
     Dates: start: 20070611
  30. COGENTIN [Concomitant]
     Route: 048

REACTIONS (30)
  - POST-TRAUMATIC STRESS DISORDER [None]
  - OSTEOARTHRITIS [None]
  - CHEST PAIN [None]
  - VULVOVAGINAL PAIN [None]
  - SINUS HEADACHE [None]
  - FLASHBACK [None]
  - ROAD TRAFFIC ACCIDENT [None]
  - MAJOR DEPRESSION [None]
  - BIPOLAR DISORDER [None]
  - SUICIDAL IDEATION [None]
  - WEIGHT INCREASED [None]
  - ASTHMA [None]
  - PELVIC PAIN [None]
  - DIABETES MELLITUS [None]
  - BLOOD CHOLESTEROL INCREASED [None]
  - VISION BLURRED [None]
  - SINUSITIS [None]
  - PAIN IN JAW [None]
  - NIGHTMARE [None]
  - MENORRHAGIA [None]
  - MUSCLE SPASMS [None]
  - DIABETIC MONONEUROPATHY [None]
  - OBESITY [None]
  - BLOOD TRIGLYCERIDES INCREASED [None]
  - NAUSEA [None]
  - DEPRESSION [None]
  - GASTROOESOPHAGEAL REFLUX DISEASE [None]
  - DYSPNOEA [None]
  - ANGINA PECTORIS [None]
  - BUNION [None]
